FAERS Safety Report 10354309 (Version 2)
Quarter: 2014Q4

REPORT INFORMATION
  Report Type: Spontaneous
  Country: US (occurrence: US)
  Receive Date: 20140731
  Receipt Date: 20141231
  Transmission Date: 20150528
  Serious: No
  Sender: FDA-Public Use
  Company Number: US-GLAXOSMITHKLINE-A1067302A

PATIENT
  Sex: Male

DRUGS (4)
  1. NORCO [Concomitant]
     Active Substance: ACETAMINOPHEN\HYDROCODONE BITARTRATE
  2. LISINOPRIL. [Concomitant]
     Active Substance: LISINOPRIL
  3. DYAZIDE [Suspect]
     Active Substance: HYDROCHLOROTHIAZIDE\TRIAMTERENE
     Indication: POLYURIA
     Route: 048
     Dates: end: 2010
  4. METFORMIN [Concomitant]
     Active Substance: METFORMIN HYDROCHLORIDE

REACTIONS (17)
  - Pain in extremity [Not Recovered/Not Resolved]
  - Urine analysis abnormal [Unknown]
  - Tympanic membrane perforation [Unknown]
  - Weight decreased [Recovering/Resolving]
  - Pollakiuria [Recovering/Resolving]
  - Hypoaesthesia [Unknown]
  - Paraesthesia [Unknown]
  - Burning sensation [Unknown]
  - Nerve injury [Unknown]
  - Pain [Unknown]
  - Carpal tunnel decompression [None]
  - Muscle spasms [Recovering/Resolving]
  - Hypertension [Recovering/Resolving]
  - Dehydration [Unknown]
  - Mental disorder [Recovering/Resolving]
  - Psychomotor hyperactivity [Unknown]
  - Sleep disorder [Unknown]
